FAERS Safety Report 12318497 (Version 1)
Quarter: 2016Q2

REPORT INFORMATION
  Report Type: Spontaneous
  Country: US (occurrence: US)
  Receive Date: 20160429
  Receipt Date: 20160429
  Transmission Date: 20160815
  Serious: Yes (Other)
  Sender: FDA-Public Use
  Company Number: US-PFIZER INC-2016236531

PATIENT

DRUGS (1)
  1. ZOLOFT [Suspect]
     Active Substance: SERTRALINE HYDROCHLORIDE
     Dosage: UNK

REACTIONS (6)
  - Pain [Unknown]
  - Dumping syndrome [Unknown]
  - Heart injury [Unknown]
  - Myocarditis [Unknown]
  - Heart rate increased [Unknown]
  - Muscle injury [Unknown]
